FAERS Safety Report 10286075 (Version 2)
Quarter: 2014Q3

REPORT INFORMATION
  Report Type: Spontaneous
  Country: US (occurrence: None)
  Receive Date: 20140703
  Receipt Date: 20140707
  Transmission Date: 20150326
  Serious: Yes (Hospitalization)
  Sender: FDA-Public Use
  Company Number: AXC-2014-000338

PATIENT
  Age: 82 Year
  Sex: Female
  Weight: 56.7 kg

DRUGS (2)
  1. PANCRELIPASE [Suspect]
     Active Substance: PANCRELIPASE
     Indication: PANCREATIC ENZYMES INCREASED
     Dosage: 10000 USP
     Route: 048
     Dates: start: 20131121
  2. LINZESS [Concomitant]
     Active Substance: LINACLOTIDE

REACTIONS (16)
  - Acne [None]
  - Vomiting [None]
  - Constipation [None]
  - Flatulence [None]
  - Skin discolouration [None]
  - Abdominal pain [None]
  - Abdominal pain upper [None]
  - Tongue discolouration [None]
  - Vein disorder [None]
  - Dry skin [None]
  - Arthralgia [None]
  - Nausea [None]
  - Abdominal distension [None]
  - Vein discolouration [None]
  - Pain [None]
  - Dizziness [None]

NARRATIVE: CASE EVENT DATE: 201402
